FAERS Safety Report 6593953-7 (Version None)
Quarter: 2010Q1

REPORT INFORMATION
  Report Type: 
  Country: None (occurrence: None)
  Receive Date: 20100222
  Receipt Date: 20100217
  Transmission Date: 20100710
  Serious: Yes (Death, Other)
  Sender: FDA-Public Use
  Company Number: US-JNJFOC-20091201708

PATIENT
  Sex: Male
  Weight: 57.61 kg

DRUGS (2)
  1. LEVAQUIN [Suspect]
     Indication: PNEUMONIA
     Route: 042
  2. LEVAQUIN [Suspect]
     Route: 048

REACTIONS (2)
  - DEATH [None]
  - TENDON RUPTURE [None]
